FAERS Safety Report 12453810 (Version 2)
Quarter: 2016Q2

REPORT INFORMATION
  Report Type: Spontaneous
  Country: AU (occurrence: AU)
  Receive Date: 20160609
  Receipt Date: 20160614
  Transmission Date: 20160815
  Serious: No
  Sender: FDA-Public Use
  Company Number: AU-GILEAD-2016-0216684

PATIENT
  Age: 58 Year
  Sex: Male

DRUGS (8)
  1. DIAZEPAM. [Concomitant]
     Active Substance: DIAZEPAM
  2. VALIUM [Concomitant]
     Active Substance: DIAZEPAM
     Dosage: 15 MG, QD
  3. VERAPAMIL [Concomitant]
     Active Substance: VERAPAMIL HYDROCHLORIDE
  4. VALIUM [Concomitant]
     Active Substance: DIAZEPAM
     Dosage: 7 MG, QD
  5. METHADONE [Concomitant]
     Active Substance: METHADONE HYDROCHLORIDE
  6. HARVONI [Suspect]
     Active Substance: LEDIPASVIR\SOFOSBUVIR
     Indication: HEPATITIS C
     Dosage: UNK
     Route: 065
     Dates: start: 20160527
  7. VALIUM [Concomitant]
     Active Substance: DIAZEPAM
     Dosage: 20 MG, QD
  8. METOPROLOL. [Concomitant]
     Active Substance: METOPROLOL

REACTIONS (5)
  - Pharyngeal oedema [Unknown]
  - Dissociation [Unknown]
  - Anxiety [Unknown]
  - Insomnia [Unknown]
  - Vertigo [Unknown]

NARRATIVE: CASE EVENT DATE: 20160527
